FAERS Safety Report 10435211 (Version 5)
Quarter: 2015Q3

REPORT INFORMATION
  Report Type: Report from Study
  Country: JP (occurrence: JP)
  Receive Date: 20140907
  Receipt Date: 20150803
  Transmission Date: 20151125
  Serious: Yes (Hospitalization)
  Sender: FDA-Public Use
  Company Number: PHHY2014JP112054

PATIENT
  Age: 30 Year
  Sex: Female

DRUGS (33)
  1. CLOZARIL [Suspect]
     Active Substance: CLOZAPINE
     Dosage: 300 MG, QD
     Route: 048
     Dates: start: 20101001, end: 20101005
  2. CLOZARIL [Suspect]
     Active Substance: CLOZAPINE
     Dosage: 400 MG, QD
     Route: 048
     Dates: start: 20101008, end: 20101019
  3. CLOZARIL [Suspect]
     Active Substance: CLOZAPINE
     Dosage: 450 MG, QD
     Route: 048
     Dates: start: 20101020, end: 20101021
  4. CLOZARIL [Suspect]
     Active Substance: CLOZAPINE
     Dosage: 600 MG, QD
     Route: 048
     Dates: start: 20101104, end: 20110726
  5. CLOZARIL [Suspect]
     Active Substance: CLOZAPINE
     Dosage: 400 MG, QD
     Route: 048
     Dates: start: 20120208
  6. BIPERIDEN HYDROCHLORIDE [Concomitant]
     Active Substance: BIPERIDEN HYDROCHLORIDE
     Dosage: 1 MG, QD
     Route: 048
     Dates: start: 20101022, end: 20101111
  7. CLOZARIL [Suspect]
     Active Substance: CLOZAPINE
     Dosage: 25 MG, QD
     Route: 048
     Dates: start: 20100908, end: 20100908
  8. CLOZARIL [Suspect]
     Active Substance: CLOZAPINE
     Dosage: 75 MG, QD
     Route: 048
     Dates: start: 20100910, end: 20100914
  9. CLOZARIL [Suspect]
     Active Substance: CLOZAPINE
     Dosage: 125 MG, QD
     Route: 048
     Dates: start: 20100916, end: 20100916
  10. CLOZARIL [Suspect]
     Active Substance: CLOZAPINE
     Dosage: 350 MG, QD
     Route: 048
     Dates: start: 20101006, end: 20101007
  11. HALOPERIDOL. [Concomitant]
     Active Substance: HALOPERIDOL
     Dosage: 3 MG, QD
     Route: 048
     Dates: start: 20100917, end: 20100927
  12. HALOPERIDOL. [Concomitant]
     Active Substance: HALOPERIDOL
     Dosage: 1.5 MG, QD
     Route: 048
     Dates: start: 20100927, end: 20100930
  13. BROTIZOLAM [Concomitant]
     Active Substance: BROTIZOLAM
     Indication: SCHIZOPHRENIA, DISORGANISED TYPE
     Dosage: 0.25 MG, QD
     Route: 048
     Dates: start: 20110202, end: 20110312
  14. LENDORMIN DAINIPPO [Concomitant]
     Active Substance: BROTIZOLAM
     Indication: SCHIZOPHRENIA, DISORGANISED TYPE
     Dosage: 0.25 MG, QD
     Route: 048
     Dates: start: 20110308, end: 20110325
  15. CLOZARIL [Suspect]
     Active Substance: CLOZAPINE
     Dosage: 450 MG, QD
     Route: 048
     Dates: start: 20110921, end: 20111128
  16. HALOPERIDOL. [Concomitant]
     Active Substance: HALOPERIDOL
     Indication: AGGRESSION
     Dosage: 9 MG, QD
     Route: 048
     Dates: start: 20100907, end: 20100909
  17. FLUNITRAZEPAM [Concomitant]
     Active Substance: FLUNITRAZEPAM
     Indication: SCHIZOPHRENIA, DISORGANISED TYPE
     Dosage: 2 MG, QD
     Route: 048
     Dates: start: 20100907, end: 20101223
  18. CLOZARIL [Suspect]
     Active Substance: CLOZAPINE
     Indication: SCHIZOPHRENIA, DISORGANISED TYPE
     Dosage: 12.5 MG, QD
     Route: 048
     Dates: start: 20100907, end: 20100907
  19. CLOZARIL [Suspect]
     Active Substance: CLOZAPINE
     Dosage: 50 MG, QD
     Route: 048
     Dates: start: 20100909, end: 20100909
  20. CLOZARIL [Suspect]
     Active Substance: CLOZAPINE
     Dosage: 500 MG, QD
     Route: 048
     Dates: start: 20101022, end: 20101026
  21. CLOZARIL [Suspect]
     Active Substance: CLOZAPINE
     Dosage: 100 MG, QD
     Route: 048
     Dates: start: 20100915, end: 20100915
  22. CLOZARIL [Suspect]
     Active Substance: CLOZAPINE
     Dosage: 150 MG, QD
     Route: 048
     Dates: start: 20100917, end: 20100921
  23. CLOZARIL [Suspect]
     Active Substance: CLOZAPINE
     Dosage: 550 MG, QD
     Route: 048
     Dates: start: 20110727, end: 20110809
  24. CLOZARIL [Suspect]
     Active Substance: CLOZAPINE
     Dosage: 500 MG, QD
     Route: 048
     Dates: start: 20110810, end: 20110920
  25. LITHIUM CARBONATE. [Concomitant]
     Active Substance: LITHIUM CARBONATE
     Indication: SCHIZOPHRENIA, DISORGANISED TYPE
     Dosage: 800 MG, QD
     Route: 048
     Dates: start: 20100907, end: 20100907
  26. CLOZARIL [Suspect]
     Active Substance: CLOZAPINE
     Dosage: 250 MG, QD
     Route: 048
     Dates: start: 20100929, end: 20100930
  27. CLOZARIL [Suspect]
     Active Substance: CLOZAPINE
     Dosage: 425 MG, QD
     Route: 048
     Dates: start: 20111129, end: 20120207
  28. FLUNITRAZEPAM [Concomitant]
     Active Substance: FLUNITRAZEPAM
     Route: 048
     Dates: start: 20101224, end: 20110223
  29. CLOZARIL [Suspect]
     Active Substance: CLOZAPINE
     Dosage: 175 MG, QD
     Route: 048
     Dates: start: 20100922, end: 20100923
  30. CLOZARIL [Suspect]
     Active Substance: CLOZAPINE
     Dosage: 200 MG, QD
     Route: 048
     Dates: start: 20100924, end: 20100928
  31. CLOZARIL [Suspect]
     Active Substance: CLOZAPINE
     Dosage: 550 MG, QD
     Route: 048
     Dates: start: 20101027, end: 20101103
  32. HALOPERIDOL. [Concomitant]
     Active Substance: HALOPERIDOL
     Indication: MANIA
     Dosage: 4.5 MG, QD
     Route: 048
     Dates: start: 20100910, end: 20100916
  33. BIPERIDEN HYDROCHLORIDE [Concomitant]
     Active Substance: BIPERIDEN HYDROCHLORIDE
     Indication: SCHIZOPHRENIA, DISORGANISED TYPE
     Dosage: 2 MG, QD
     Route: 048
     Dates: start: 20100907, end: 20101021

REACTIONS (18)
  - Abnormal behaviour [Recovering/Resolving]
  - Negativism [Unknown]
  - Hallucination [Not Recovered/Not Resolved]
  - Affect lability [Recovering/Resolving]
  - Faecal incontinence [Recovering/Resolving]
  - Psychotic disorder [Unknown]
  - Thinking abnormal [Recovering/Resolving]
  - Hallucination, auditory [Recovering/Resolving]
  - Irritability [Unknown]
  - Mania [Unknown]
  - Urinary incontinence [Recovering/Resolving]
  - Delusion [Unknown]
  - Somnolence [Recovering/Resolving]
  - Salivary hypersecretion [Recovered/Resolved]
  - Salivary hypersecretion [Not Recovered/Not Resolved]
  - Constipation [Not Recovered/Not Resolved]
  - Paranoia [Unknown]
  - Anxiety [Unknown]

NARRATIVE: CASE EVENT DATE: 201010
